FAERS Safety Report 13380813 (Version 1)
Quarter: 2017Q1

REPORT INFORMATION
  Report Type: Spontaneous
  Country: GT (occurrence: GT)
  Receive Date: 20170329
  Receipt Date: 20170329
  Transmission Date: 20170429
  Serious: Yes (Death, Hospitalization)
  Sender: FDA-Public Use
  Company Number: GT-ROCHE-1912535

PATIENT
  Age: 8 Week
  Sex: Male

DRUGS (1)
  1. ACCENTRIX [Suspect]
     Active Substance: RANIBIZUMAB
     Indication: RETINOPATHY OF PREMATURITY
     Dosage: HALF AN AMPOULE IN EACH EYE
     Route: 031
     Dates: start: 20170315

REACTIONS (2)
  - Angiopathy [Fatal]
  - Off label use [Unknown]
